FAERS Safety Report 8290387-4 (Version None)
Quarter: 2012Q2

REPORT INFORMATION
  Report Type: 
  Country: None (occurrence: None)
  Receive Date: 20120417
  Receipt Date: 20120410
  Transmission Date: 20120825
  Serious: Yes (Other)
  Sender: FDA-Public Use
  Company Number: DE-VERTEX PHARMACEUTICALS INC.-000000000000000178

PATIENT
  Sex: Male

DRUGS (11)
  1. INCIVO (TELAPREVIR) [Suspect]
     Indication: HEPATITIS C
     Dosage: DOSAGE FORM: TABLET
     Route: 048
     Dates: start: 20111112, end: 20120131
  2. BUDESONIDE [Concomitant]
     Indication: CHRONIC OBSTRUCTIVE PULMONARY DISEASE
     Dosage: DOSAGE FORM: UNSPECIFIED
     Route: 055
  3. COPEGUS [Concomitant]
     Indication: HEPATITIS C
     Route: 048
     Dates: start: 20111112
  4. THEOPHYLLINE [Concomitant]
  5. MIRTAZAPINE [Concomitant]
  6. SPIRIVA [Concomitant]
  7. FORMATRIS [Concomitant]
  8. PREDNISOLONE [Concomitant]
  9. PEGASYS [Concomitant]
     Indication: HEPATITIS C
     Route: 058
     Dates: start: 20111112
  10. FOSINOPRIL SODIUM [Concomitant]
  11. OMEPRAZOLE [Concomitant]

REACTIONS (1)
  - ORAL CANDIDIASIS [None]
